FAERS Safety Report 24787771 (Version 3)
Quarter: 2025Q2

REPORT INFORMATION
  Report Type: Report from Study
  Country: US (occurrence: US)
  Receive Date: 20241230
  Receipt Date: 20250621
  Transmission Date: 20250716
  Serious: Yes (Hospitalization, Congenital Anomaly, Other)
  Sender: UCB
  Company Number: US-UCBSA-2024067818

PATIENT
  Age: 13 Year
  Sex: Female
  Weight: 44 kg

DRUGS (2)
  1. FINTEPLA [Suspect]
     Active Substance: FENFLURAMINE
     Indication: Seizure
     Dosage: 3 MILLILITER, 2X/DAY (BID)
     Dates: start: 20211009
  2. FINTEPLA [Suspect]
     Active Substance: FENFLURAMINE
     Indication: Severe myoclonic epilepsy of infancy

REACTIONS (3)
  - Pulmonary valve incompetence [Not Recovered/Not Resolved]
  - Atrial septal defect [Not Recovered/Not Resolved]
  - Aggression [Recovered/Resolved]

NARRATIVE: CASE EVENT DATE: 20241221
